FAERS Safety Report 12077372 (Version 3)
Quarter: 2016Q2

REPORT INFORMATION
  Report Type: Spontaneous
  Country: JP (occurrence: JP)
  Receive Date: 20160215
  Receipt Date: 20160516
  Transmission Date: 20160815
  Serious: Yes (Other)
  Sender: FDA-Public Use
  Company Number: JP-009507513-1602JPN006907

PATIENT
  Sex: Male
  Weight: 43 kg

DRUGS (6)
  1. ESLAX INTRAVENOUS 50MG/5.0ML [Suspect]
     Active Substance: ROCURONIUM BROMIDE
     Indication: NEUROMUSCULAR BLOCKING THERAPY
     Dosage: 50 MG/DAY, DIVIDED DOSE FREQUENCY UNKNOWN
     Route: 042
  2. PROPOFOL. [Concomitant]
     Active Substance: PROPOFOL
     Indication: INDUCTION OF ANAESTHESIA
     Dosage: 100 MG, QD (DIVIDED DOSE FREQUENCY UNKNOWN)
     Route: 051
  3. FLURBIPROFEN AXETIL [Concomitant]
     Active Substance: FLURBIPROFEN AXETIL
     Indication: POSTOPERATIVE ANALGESIA
     Dosage: 50 MG, QD (DIVIDED DOSE FREQUENCY UNKNOWN)
     Route: 065
  4. ULTIVA [Concomitant]
     Active Substance: REMIFENTANIL HYDROCHLORIDE
     Indication: MAINTENANCE OF ANAESTHESIA
     Dosage: 0.1-0.4 MICROGRAM/KG/MIN
     Route: 042
  5. SEVOFLURANE. [Concomitant]
     Active Substance: SEVOFLURANE
     Indication: MAINTENANCE OF ANAESTHESIA
     Route: 055
  6. ULTIVA [Concomitant]
     Active Substance: REMIFENTANIL HYDROCHLORIDE
     Indication: INDUCTION OF ANAESTHESIA
     Dosage: 0.3 MICROGRAM/KG/MIN
     Route: 042

REACTIONS (5)
  - Respiratory depression [Unknown]
  - Respiratory arrest [Unknown]
  - Altered state of consciousness [Unknown]
  - Cardio-respiratory arrest [Unknown]
  - Stupor [Unknown]
